FAERS Safety Report 8064387-3 (Version None)
Quarter: 2012Q1

REPORT INFORMATION
  Report Type: 
  Country: None (occurrence: None)
  Receive Date: 20120123
  Receipt Date: 20120118
  Transmission Date: 20120608
  Serious: Yes (Death, Hospitalization)
  Sender: FDA-Public Use
  Company Number: BR-ASTRAZENECA-2012SE03492

PATIENT
  Age: 83 Year
  Sex: Female

DRUGS (4)
  1. SYMBICORT [Suspect]
     Indication: CHRONIC OBSTRUCTIVE PULMONARY DISEASE
     Dosage: 320/9 MCG
     Route: 055
     Dates: start: 20090101, end: 20111201
  2. CRESTOR [Suspect]
     Indication: BLOOD CHOLESTEROL INCREASED
     Route: 048
     Dates: end: 20110101
  3. SUSTRATE [Concomitant]
     Indication: HYPERTENSION
     Route: 048
  4. METOPROLOL SUCCINATE [Suspect]
     Indication: HYPERTENSION
     Route: 048

REACTIONS (5)
  - URINARY TRACT INFECTION [None]
  - FUNGAL INFECTION [None]
  - DEMENTIA ALZHEIMER'S TYPE [None]
  - MUSCULAR WEAKNESS [None]
  - CARDIAC ARREST [None]
